FAERS Safety Report 8949597 (Version 2)
Quarter: 2012Q4

REPORT INFORMATION
  Report Type: 
  Country: NZ (occurrence: NZ)
  Receive Date: 20121206
  Receipt Date: 20121220
  Transmission Date: 20130627
  Serious: Yes (Death, Life-Threatening, Hospitalization, Disabling)
  Sender: FDA-Public Use
  Company Number: NZ-TEVA-364468ISR

PATIENT
  Age: 35 Year
  Sex: Female
  Weight: 110 kg

DRUGS (7)
  1. COPAXONE [Suspect]
     Indication: MULTIPLE SCLEROSIS
     Dosage: 20 Milligram Daily;
     Route: 058
     Dates: start: 20120312
  2. LITHIUM [Concomitant]
     Indication: BIPOLAR DISORDER
     Dosage: 750 Milligram Daily;
     Route: 048
  3. NORTRIPTYLINE [Concomitant]
     Indication: SLEEP DISORDER
     Dosage: Nocte
     Route: 048
  4. TRAMADOL [Concomitant]
     Indication: PAIN
     Dosage: 300 Milligram Daily;
     Route: 048
  5. OMEPRAZOLE [Concomitant]
     Indication: PAIN
     Dosage: 20 Milligram Daily;
     Route: 048
  6. GAVISCON (ANTACID) [Concomitant]
     Indication: ANTACID THERAPY
  7. GAVISCON (ANTACID) [Concomitant]
     Indication: PAIN

REACTIONS (3)
  - Death [Fatal]
  - Pancreatitis [Unknown]
  - Sepsis [Unknown]
